FAERS Safety Report 6616190-6 (Version None)
Quarter: 2010Q1

REPORT INFORMATION
  Report Type: 
  Country: None (occurrence: None)
  Receive Date: 20100305
  Receipt Date: 20100224
  Transmission Date: 20100710
  Serious: Yes (Death, Life-Threatening)
  Sender: FDA-Public Use
  Company Number: GB-JNJFOC-20091107928

PATIENT
  Age: 41 Year
  Sex: Male

DRUGS (2)
  1. TRAMADOL HCL [Suspect]
     Indication: BACK PAIN
     Route: 048
  2. ETHANOL [Concomitant]
     Route: 048

REACTIONS (5)
  - CARDIAC ARREST [None]
  - DRY MOUTH [None]
  - DYSPNOEA [None]
  - OVERDOSE [None]
  - RESPIRATORY DEPRESSION [None]
